FAERS Safety Report 8828701 (Version 1)
Quarter: 2012Q4

REPORT INFORMATION
  Report Type: 
  Country: BR (occurrence: BR)
  Receive Date: 20121008
  Receipt Date: 20121008
  Transmission Date: 20130627
  Serious: Yes (Death, Hospitalization, Other)
  Sender: FDA-Public Use
  Company Number: BR-ALEXION-A201201816

PATIENT
  Sex: Female

DRUGS (1)
  1. SOLIRIS 300MG [Suspect]
     Indication: PAROXYSMAL NOCTURNAL HAEMOGLOBINURIA
     Dosage: 900 mg, q2w
     Route: 042
     Dates: start: 20110103, end: 20120904

REACTIONS (6)
  - Renal failure [Fatal]
  - Hepatic failure [Fatal]
  - Neutropenia [Unknown]
  - Erysipelas [Unknown]
  - Sepsis [Fatal]
  - Pyrexia [Unknown]
